FAERS Safety Report 18971821 (Version 1)
Quarter: 2021Q1

REPORT INFORMATION
  Report Type: Report from Study
  Country: None (occurrence: CA)
  Receive Date: 20210305
  Receipt Date: 20210305
  Transmission Date: 20210420
  Serious: Yes (Other)
  Sender: FDA-Public Use
  Company Number: CA-ABBVIE-21K-028-3799336-00

PATIENT
  Age: 61 Year
  Sex: Male

DRUGS (1)
  1. HUMIRA [Suspect]
     Active Substance: ADALIMUMAB
     Indication: CROHN^S DISEASE
     Route: 058
     Dates: start: 20171201

REACTIONS (14)
  - Obstruction [Recovered/Resolved]
  - Skin injury [Not Recovered/Not Resolved]
  - Abdominal pain [Recovered/Resolved]
  - Diarrhoea [Recovered/Resolved]
  - Haematidrosis [Not Recovered/Not Resolved]
  - Weight increased [Recovered/Resolved]
  - Arthralgia [Not Recovered/Not Resolved]
  - Therapeutic response shortened [Unknown]
  - Impaired quality of life [Unknown]
  - Liver function test increased [Not Recovered/Not Resolved]
  - Abdominal distension [Recovered/Resolved]
  - Blood iron increased [Not Recovered/Not Resolved]
  - Heavy exposure to ultraviolet light [Not Recovered/Not Resolved]
  - Impaired work ability [Unknown]

NARRATIVE: CASE EVENT DATE: 202102
